FAERS Safety Report 6146088-1 (Version None)
Quarter: 2009Q2

REPORT INFORMATION
  Report Type: 
  Country: None (occurrence: None)
  Receive Date: 20090407
  Receipt Date: 20090326
  Transmission Date: 20091009
  Serious: Yes (Other)
  Sender: FDA-Public Use
  Company Number: AU-PFIZER INC-2009170383

PATIENT

DRUGS (7)
  1. NEURONTIN [Suspect]
     Dosage: UNK
  2. DILANTIN [Suspect]
     Indication: CONVULSION
  3. LYRICA [Suspect]
     Dosage: 125 MG, 2X/DAY
  4. TEGRETOL [Suspect]
  5. ALL OTHER THERAPEUTIC PRODUCTS [Suspect]
     Indication: CENTRAL PAIN SYNDROME
  6. ANTIDEPRESSANTS [Suspect]
  7. OPIOIDS [Suspect]
     Route: 062

REACTIONS (10)
  - ABDOMINAL DISCOMFORT [None]
  - COLITIS [None]
  - CONSTIPATION [None]
  - DIZZINESS [None]
  - DRUG INEFFECTIVE [None]
  - DYSGEUSIA [None]
  - GINGIVAL DISORDER [None]
  - NAUSEA [None]
  - RECTAL HAEMORRHAGE [None]
  - TREMOR [None]
